FAERS Safety Report 19732826 (Version 1)
Quarter: 2021Q3

REPORT INFORMATION
  Report Type: Spontaneous
  Country: US (occurrence: US)
  Receive Date: 20210822
  Receipt Date: 20210822
  Transmission Date: 20211014
  Serious: No
  Sender: FDA-Public Use
  Company Number: None

PATIENT
  Age: 65 Year
  Sex: Female
  Weight: 93.6 kg

DRUGS (6)
  1. ALENDRONATE SODIUM 70 MG [Suspect]
     Active Substance: ALENDRONATE SODIUM
     Indication: OSTEOPOROSIS
     Dosage: ?          QUANTITY:4 TABLET(S);OTHER FREQUENCY:WEEKLY;?
     Route: 048
     Dates: start: 20210727, end: 20210813
  2. CYMBALTAL [Concomitant]
  3. LEVOTHYROXIN [Concomitant]
     Active Substance: LEVOTHYROXINE
  4. LIPITOR [Concomitant]
     Active Substance: ATORVASTATIN CALCIUM
  5. IBUPROFEN. [Concomitant]
     Active Substance: IBUPROFEN
  6. NEUROTIN [Concomitant]
     Active Substance: GABAPENTIN

REACTIONS (8)
  - Pain in extremity [None]
  - Arthralgia [None]
  - Back pain [None]
  - Peripheral swelling [None]
  - Plicated tongue [None]
  - Ageusia [None]
  - Nail discolouration [None]
  - Cold sweat [None]

NARRATIVE: CASE EVENT DATE: 20210820
